FAERS Safety Report 11202315 (Version 1)
Quarter: 2015Q2

REPORT INFORMATION
  Report Type: Spontaneous
  Country: US (occurrence: None)
  Receive Date: 20150608
  Receipt Date: 20150608
  Transmission Date: 20150821
  Serious: No
  Sender: FDA-Public Use
  Company Number: 2015TUS001347

PATIENT
  Age: 63 Year
  Sex: Female

DRUGS (1)
  1. BRINTELLIX [Suspect]
     Active Substance: VORTIOXETINE HYDROBROMIDE
     Indication: PRODUCT USED FOR UNKNOWN INDICATION
     Dosage: 5 MG, (PINK)
     Dates: start: 20141204

REACTIONS (3)
  - Pruritus [None]
  - Rash generalised [None]
  - Rash erythematous [None]

NARRATIVE: CASE EVENT DATE: 20141228
